FAERS Safety Report 9379830 (Version 2)
Quarter: 2013Q3

REPORT INFORMATION
  Report Type: Spontaneous
  Country: US (occurrence: US)
  Receive Date: 20130702
  Receipt Date: 20130813
  Transmission Date: 20140515
  Serious: No
  Sender: FDA-Public Use
  Company Number: US-TEVA-414252USA

PATIENT
  Age: 52 Year
  Sex: Female

DRUGS (5)
  1. PROAIR HFA [Suspect]
     Indication: PROPHYLAXIS AGAINST BRONCHOSPASM
  2. FLONASE [Concomitant]
  3. BENADRYL [Concomitant]
  4. CALCIUM [Concomitant]
  5. FISH OIL [Concomitant]

REACTIONS (5)
  - Malaise [Recovered/Resolved]
  - Respiratory tract congestion [Recovered/Resolved]
  - Pain [Recovered/Resolved]
  - Cough [Recovered/Resolved]
  - Dysphonia [Recovered/Resolved]
